FAERS Safety Report 8302765-5 (Version None)
Quarter: 2012Q2

REPORT INFORMATION
  Report Type: 
  Country: None (occurrence: None)
  Receive Date: 20120420
  Receipt Date: 20120413
  Transmission Date: 20120825
  Serious: No
  Sender: FDA-Public Use
  Company Number: US-BAYER-2012-038596

PATIENT

DRUGS (2)
  1. ALEVE (CAPLET) [Suspect]
     Dosage: 1540 MG, UNK
     Route: 048
  2. EXTRA STRENGTH TYLENOL [Concomitant]
     Dosage: 1000 MG, UNK

REACTIONS (1)
  - NO ADVERSE EVENT [None]
